FAERS Safety Report 10740623 (Version 1)
Quarter: 2015Q1

REPORT INFORMATION
  Report Type: Report from Study
  Country: US (occurrence: US)
  Receive Date: 20150127
  Receipt Date: 20150127
  Transmission Date: 20150721
  Serious: Yes (Other)
  Sender: FDA-Public Use
  Company Number: US-BAYER-2015-010423

PATIENT
  Sex: Female

DRUGS (1)
  1. MIRENA [Suspect]
     Active Substance: LEVONORGESTREL
     Indication: CONTRACEPTION
     Dosage: UNK

REACTIONS (5)
  - Amenorrhoea [None]
  - Uterine dilation and curettage [None]
  - Drug ineffective [None]
  - Abortion spontaneous [None]
  - Pregnancy with contraceptive device [None]
